FAERS Safety Report 4457426-X (Version None)
Quarter: 2004Q3

REPORT INFORMATION
  Report Type: 
  Country: None (occurrence: None)
  Receive Date: 20040922
  Receipt Date: 20040913
  Transmission Date: 20050211
  Serious: Yes (Death, Other)
  Sender: FDA-Public Use
  Company Number: US-JNJFOC-20040903719

PATIENT
  Age: 83 Year
  Sex: Female

DRUGS (2)
  1. ACETAMINOPHEN [Suspect]
     Indication: SUICIDE ATTEMPT
  2. ACETAMINOPHEN/DIPHENHYDRAMINE (ACETAMINOPHEN/DIPHENHYDRAMINE HCL) [Suspect]
     Indication: SUICIDE ATTEMPT
     Dosage: ORAL
     Route: 048

REACTIONS (19)
  - AGITATION [None]
  - ALANINE AMINOTRANSFERASE INCREASED [None]
  - ANION GAP INCREASED [None]
  - AREFLEXIA [None]
  - ASPARTATE AMINOTRANSFERASE INCREASED [None]
  - BLOOD PRESSURE SYSTOLIC DECREASED [None]
  - BUNDLE BRANCH BLOCK [None]
  - CARDIOMYOPATHY [None]
  - CHEST PAIN [None]
  - COMA [None]
  - CORONARY ARTERY ATHEROSCLEROSIS [None]
  - HEART RATE DECREASED [None]
  - HEPATIC NECROSIS [None]
  - ISCHAEMIA [None]
  - MULTIPLE DRUG OVERDOSE [None]
  - PNEUMONITIS [None]
  - RESPIRATORY ARREST [None]
  - SCAR [None]
  - VOMITING [None]
